FAERS Safety Report 5715163-5 (Version None)
Quarter: 2008Q2

REPORT INFORMATION
  Report Type: 
  Country: None (occurrence: None)
  Receive Date: 20080423
  Receipt Date: 20080411
  Transmission Date: 20081010
  Serious: Yes (Other)
  Sender: FDA-Public Use
  Company Number: GB-ELI_LILLY_AND_COMPANY-GB200804003251

PATIENT
  Age: 10 Year
  Sex: Male

DRUGS (2)
  1. ATOMOXETINE HCL [Suspect]
     Dosage: 56 MG, UNKNOWN
  2. METHYLPHENIDATE HCL [Concomitant]
     Dosage: UNK, UNKNOWN

REACTIONS (2)
  - HALLUCINATION [None]
  - SURGERY [None]
